FAERS Safety Report 26214394 (Version 1)
Quarter: 2025Q4

REPORT INFORMATION
  Report Type: Spontaneous
  Country: US (occurrence: US)
  Receive Date: 20251230
  Receipt Date: 20251230
  Transmission Date: 20260117
  Serious: Yes (Death)
  Sender: AMGEN
  Company Number: US-AMGEN-USASP2025254908

PATIENT
  Age: 46 Year
  Sex: Male

DRUGS (3)
  1. TRASTUZUMAB [Suspect]
     Active Substance: TRASTUZUMAB
     Indication: Oesophageal cancer metastatic
     Dosage: UNK
     Route: 065
  2. NALIRIFOX [Concomitant]
  3. PEMBROLIZUMAB [Concomitant]
     Active Substance: PEMBROLIZUMAB

REACTIONS (2)
  - Adenocarcinoma metastatic [Fatal]
  - Treatment failure [Unknown]
